FAERS Safety Report 19611509 (Version 1)
Quarter: 2021Q3

REPORT INFORMATION
  Report Type: Spontaneous
  Country: US (occurrence: US)
  Receive Date: 20210726
  Receipt Date: 20210726
  Transmission Date: 20211014
  Serious: Yes (Hospitalization)
  Sender: FDA-Public Use
  Company Number: US-TEVA-2021-US-1935082

PATIENT
  Sex: Male

DRUGS (1)
  1. NEFAZODONE [Suspect]
     Active Substance: NEFAZODONE
     Indication: DEPRESSION
     Route: 065

REACTIONS (3)
  - Product supply issue [Unknown]
  - Product dose omission issue [Unknown]
  - Coronary artery bypass [Unknown]
